FAERS Safety Report 12495881 (Version 1)
Quarter: 2016Q2

REPORT INFORMATION
  Report Type: Spontaneous
  Country: GB (occurrence: GB)
  Receive Date: 20160624
  Receipt Date: 20160624
  Transmission Date: 20160815
  Serious: Yes (Hospitalization)
  Sender: FDA-Public Use
  Company Number: GB-TEVA-669204ACC

PATIENT
  Age: 88 Year
  Sex: Male

DRUGS (12)
  1. ASPIRIN. [Concomitant]
     Active Substance: ASPIRIN
  2. FINASTERIDE. [Concomitant]
     Active Substance: FINASTERIDE
  3. HYLO-FORTE [Concomitant]
     Active Substance: HYALURONATE SODIUM
  4. LACRI-LUBE [Concomitant]
  5. RIVASTIGMINE. [Concomitant]
     Active Substance: RIVASTIGMINE
  6. SINEMET [Concomitant]
     Active Substance: CARBIDOPA\LEVODOPA
  7. TOLTERODINE [Suspect]
     Active Substance: TOLTERODINE
     Indication: URINARY INCONTINENCE
     Route: 048
     Dates: start: 20160527, end: 20160601
  8. AMLODIPINE [Concomitant]
     Active Substance: AMLODIPINE BESYLATE
  9. LAXIDO [Concomitant]
     Active Substance: POLYETHYLENE GLYCOL 3350\POTASSIUM CHLORIDE\SODIUM BICARBONATE\SODIUM CHLORIDE
  10. TEVA UK TAMSULOSIN MODIFIED RELEASE [Concomitant]
     Active Substance: TAMSULOSIN
  11. NORMACOL [Concomitant]
     Active Substance: KARAYA GUM
  12. PARACETAMOL [Concomitant]
     Active Substance: ACETAMINOPHEN

REACTIONS (3)
  - Delirium [Not Recovered/Not Resolved]
  - Confusional state [Unknown]
  - Fall [Unknown]

NARRATIVE: CASE EVENT DATE: 20160529
